FAERS Safety Report 14565892 (Version 2)
Quarter: 2018Q1

REPORT INFORMATION
  Report Type: Spontaneous
  Country: JP (occurrence: JP)
  Receive Date: 20180223
  Receipt Date: 20180315
  Transmission Date: 20180509
  Serious: Yes (Life-Threatening, Hospitalization, Congenital Anomaly)
  Sender: FDA-Public Use
  Company Number: JP-ASTELLAS-2018JP003410

PATIENT
  Age: 9 Day
  Sex: Male
  Weight: 2 kg

DRUGS (14)
  1. TOKISHAKUYAKUSAN                   /08000701/ [Concomitant]
     Active Substance: HERBALS
     Indication: FOETAL EXPOSURE DURING PREGNANCY
     Route: 064
     Dates: start: 20171231, end: 20180111
  2. PROGRAF [Suspect]
     Active Substance: TACROLIMUS\TACROLIMUS ANHYDROUS
     Indication: FOETAL EXPOSURE DURING PREGNANCY
     Route: 064
     Dates: start: 2017, end: 20180112
  3. PREDONINE [Concomitant]
     Active Substance: PREDNISOLONE
     Indication: FOETAL EXPOSURE DURING PREGNANCY
     Route: 064
     Dates: start: 20170511, end: 20180112
  4. DAIPHEN [Concomitant]
     Active Substance: SULFAMETHOXAZOLE\TRIMETHOPRIM
     Indication: FOETAL EXPOSURE DURING PREGNANCY
     Dosage: UNK UNK, UNKNOWN FREQ.
     Route: 064
     Dates: start: 2017, end: 20170607
  5. ADONA                              /00056903/ [Concomitant]
     Active Substance: CARBAZOCHROME SODIUM SULFONATE
     Indication: FOETAL EXPOSURE DURING PREGNANCY
     Route: 064
     Dates: start: 20170731, end: 20170802
  6. TRANSAMIN [Concomitant]
     Active Substance: TRANEXAMIC ACID
     Indication: FOETAL EXPOSURE DURING PREGNANCY
     Route: 064
     Dates: start: 20170731, end: 20170802
  7. PROGRAF [Suspect]
     Active Substance: TACROLIMUS\TACROLIMUS ANHYDROUS
     Indication: MATERNAL EXPOSURE DURING BREAST FEEDING
     Route: 063
     Dates: start: 20180121
  8. REBAMIPIDE [Concomitant]
     Active Substance: REBAMIPIDE
     Indication: FOETAL EXPOSURE DURING PREGNANCY
     Route: 064
     Dates: start: 2017, end: 20180112
  9. REBAMIPIDE [Concomitant]
     Active Substance: REBAMIPIDE
     Indication: MATERNAL EXPOSURE DURING BREAST FEEDING
     Route: 063
     Dates: start: 20180121
  10. MAGMITT [Concomitant]
     Active Substance: MAGNESIUM OXIDE
     Indication: FOETAL EXPOSURE DURING PREGNANCY
     Route: 064
     Dates: start: 20170727, end: 20170802
  11. PREDONINE [Concomitant]
     Active Substance: PREDNISOLONE
     Indication: MATERNAL EXPOSURE DURING BREAST FEEDING
     Route: 063
     Dates: start: 20180121
  12. EDIROL [Concomitant]
     Active Substance: ELDECALCITOL
     Indication: FOETAL EXPOSURE DURING PREGNANCY
     Dosage: 0.75 ?G, ONCE DAILY
     Route: 064
     Dates: start: 2017, end: 20170607
  13. RITODRINE                          /00424202/ [Concomitant]
     Indication: FOETAL EXPOSURE DURING PREGNANCY
     Route: 064
     Dates: start: 20171230, end: 20180111
  14. FERROUS SULFATE. [Concomitant]
     Active Substance: FERROUS SULFATE
     Indication: FOETAL EXPOSURE DURING PREGNANCY
     Route: 064
     Dates: start: 20180109, end: 20180112

REACTIONS (3)
  - Low birth weight baby [Recovered/Resolved]
  - Exposure via breast milk [Unknown]
  - Neonatal asphyxia [Recovered/Resolved]

NARRATIVE: CASE EVENT DATE: 20180121
